FAERS Safety Report 12061085 (Version 2)
Quarter: 2016Q3

REPORT INFORMATION
  Report Type: Report from Study
  Country: BR (occurrence: BR)
  Receive Date: 20160210
  Receipt Date: 20160812
  Transmission Date: 20161109
  Serious: Yes (Hospitalization, Other)
  Sender: FDA-Public Use
  Company Number: BR-ABBVIE-16K-020-1554327-00

PATIENT
  Age: 56 Year
  Sex: Female
  Weight: 78 kg

DRUGS (5)
  1. METHOTREXATE. [Concomitant]
     Active Substance: METHOTREXATE
     Indication: SPONDYLITIS
     Route: 048
     Dates: start: 2011
  2. FOLIC ACID. [Concomitant]
     Active Substance: FOLIC ACID
     Indication: GASTROINTESTINAL INJURY
  3. FOLIC ACID. [Concomitant]
     Active Substance: FOLIC ACID
     Indication: SPONDYLITIS
     Route: 048
     Dates: start: 2011
  4. HUMIRA [Suspect]
     Active Substance: ADALIMUMAB
     Indication: ANKYLOSING SPONDYLITIS
     Route: 058
     Dates: start: 20110824
  5. FOLIC ACID. [Concomitant]
     Active Substance: FOLIC ACID
     Indication: PROPHYLAXIS

REACTIONS (21)
  - Intestinal obstruction [Recovered/Resolved]
  - Swelling face [Unknown]
  - Inflammation [Recovering/Resolving]
  - Pruritus [Recovering/Resolving]
  - Bile duct stenosis [Recovered/Resolved]
  - Stomatitis [Recovering/Resolving]
  - Inflammation [Recovered/Resolved]
  - Local swelling [Unknown]
  - Wound [Recovering/Resolving]
  - Mouth swelling [Unknown]
  - Injection site erythema [Not Recovered/Not Resolved]
  - Injection site papule [Recovered/Resolved]
  - Oral pruritus [Recovering/Resolving]
  - Hypersensitivity [Unknown]
  - Neck pain [Recovering/Resolving]
  - Injection site pain [Not Recovered/Not Resolved]
  - Pain [Unknown]
  - Injection site swelling [Not Recovered/Not Resolved]
  - Injection site warmth [Not Recovered/Not Resolved]
  - Feeling hot [Recovering/Resolving]
  - Finger deformity [Not Recovered/Not Resolved]

NARRATIVE: CASE EVENT DATE: 20110824
